FAERS Safety Report 6438568-6 (Version None)
Quarter: 2009Q4

REPORT INFORMATION
  Report Type: 
  Country: None (occurrence: None)
  Receive Date: 20091112
  Receipt Date: 20091029
  Transmission Date: 20100525
  Serious: No
  Sender: FDA-Public Use
  Company Number: US-ALLERGAN-0914987US

PATIENT
  Age: 62 Year
  Sex: Female

DRUGS (4)
  1. COMBIGAN [Suspect]
     Indication: INTRAOCULAR PRESSURE INCREASED
     Dosage: 1 GTT, BID
     Route: 047
  2. COMBIGAN [Suspect]
     Dosage: 1 GTT, BID
     Route: 047
  3. COMBIGAN [Suspect]
     Dosage: 1 GTT, BID
     Route: 047
  4. STEROID [Concomitant]
     Indication: SCLERITIS
     Dosage: UNK

REACTIONS (3)
  - EYE IRRITATION [None]
  - OCULAR HYPERAEMIA [None]
  - THERAPEUTIC RESPONSE UNEXPECTED [None]
